FAERS Safety Report 24124020 (Version 1)
Quarter: 2024Q3

REPORT INFORMATION
  Report Type: Report from Study
  Country: US (occurrence: None)
  Receive Date: 20240723
  Receipt Date: 20240723
  Transmission Date: 20241016
  Serious: Yes (Other)
  Sender: ASTRAZENECA
  Company Number: 2023A096224

PATIENT

DRUGS (1)
  1. PULMICORT TURBUHALER [Suspect]
     Active Substance: BUDESONIDE
     Indication: Asthma
     Route: 055

REACTIONS (5)
  - Lung neoplasm malignant [Unknown]
  - Visual impairment [Unknown]
  - Dyspnoea [Unknown]
  - Cough [Unknown]
  - Product use issue [Unknown]
